FAERS Safety Report 18549006 (Version 1)
Quarter: 2020Q4

REPORT INFORMATION
  Report Type: Spontaneous
  Country: US (occurrence: US)
  Receive Date: 20201126
  Receipt Date: 20201126
  Transmission Date: 20210114
  Serious: Yes (Hospitalization, Other)
  Sender: FDA-Public Use
  Company Number: US-ASTRAZENECA-2020SF53421

PATIENT
  Age: 931 Month
  Sex: Male
  Weight: 72.6 kg

DRUGS (2)
  1. CALQUENCE [Suspect]
     Active Substance: ACALABRUTINIB
     Indication: CHRONIC LYMPHOCYTIC LEUKAEMIA
     Route: 048
     Dates: start: 20201022
  2. CALQUENCE [Suspect]
     Active Substance: ACALABRUTINIB
     Indication: CHRONIC LYMPHOCYTIC LEUKAEMIA
     Route: 048
     Dates: start: 20201111

REACTIONS (10)
  - Dizziness [Unknown]
  - Hypotension [Recovering/Resolving]
  - Nausea [Unknown]
  - Weight increased [Unknown]
  - Diarrhoea [Unknown]
  - Fall [Unknown]
  - Weight decreased [Unknown]
  - Haemoglobin decreased [Recovering/Resolving]
  - Syncope [Unknown]
  - Vomiting [Unknown]

NARRATIVE: CASE EVENT DATE: 202011
